FAERS Safety Report 5541695-9 (Version None)
Quarter: 2007Q4

REPORT INFORMATION
  Report Type: 
  Country: None (occurrence: None)
  Receive Date: 20071205
  Receipt Date: 20071121
  Transmission Date: 20080405
  Serious: Yes (Hospitalization)
  Sender: FDA-Public Use
  Company Number: 2007AL005020

PATIENT
  Age: 84 Year
  Sex: Female

DRUGS (5)
  1. DICLOFENAC SODIUM [Suspect]
     Indication: BACK PAIN
     Dosage: 50 MG; QD; PO
     Route: 048
     Dates: start: 20071004, end: 20071004
  2. ASPIRIN [Concomitant]
  3. SOTALOL HYDROCHLORIDE [Concomitant]
  4. ENALAPRIL [Concomitant]
  5. ACETAMINOPHEN [Concomitant]

REACTIONS (10)
  - ANAPHYLACTIC REACTION [None]
  - BLOOD PRESSURE INCREASED [None]
  - CHILLS [None]
  - DRY MOUTH [None]
  - DYSPHONIA [None]
  - GENERALISED ERYTHEMA [None]
  - LOSS OF CONSCIOUSNESS [None]
  - PRURITUS [None]
  - THROAT TIGHTNESS [None]
  - URINARY INCONTINENCE [None]
